FAERS Safety Report 4283486-5 (Version None)
Quarter: 2004Q1

REPORT INFORMATION
  Report Type: 
  Country: None (occurrence: None)
  Receive Date: 20040115
  Receipt Date: 20021127
  Transmission Date: 20041129
  Serious: Yes (Death, Hospitalization)
  Sender: FDA-Public Use
  Company Number: NSADSS2002032655

PATIENT
  Age: 69 Year
  Sex: Female
  Weight: 63.5036 kg

DRUGS (3)
  1. DOXIL [Suspect]
     Indication: ENDOMETRIAL CANCER
     Dosage: 100 MG, INTRAVENOUS DRIP
     Route: 041
     Dates: start: 20020821, end: 20020821
  2. DECADRON (DEXAMETHASOEN) [Concomitant]
  3. ANZEMET (DOLASETRON MESILATE) [Concomitant]

REACTIONS (2)
  - BACK PAIN [None]
  - CONDITION AGGRAVATED [None]
